FAERS Safety Report 17662338 (Version 1)
Quarter: 2020Q2

REPORT INFORMATION
  Report Type: Spontaneous
  Country: FR (occurrence: FR)
  Receive Date: 20200413
  Receipt Date: 20200413
  Transmission Date: 20200713
  Serious: Yes (Other)
  Sender: FDA-Public Use
  Company Number: FR-MYLANLABS-2020M1036344

PATIENT
  Age: 55 Year
  Sex: Male
  Weight: 99.5 kg

DRUGS (1)
  1. LIPANTHYL 145 MG, COMPRIM? PELLICUL? [Suspect]
     Active Substance: FENOFIBRATE
     Indication: HYPERTRIGLYCERIDAEMIA
     Dosage: 145 MILLIGRAM
     Route: 048
     Dates: start: 20160712, end: 20200310

REACTIONS (1)
  - Renal failure [Not Recovered/Not Resolved]

NARRATIVE: CASE EVENT DATE: 20180605
